FAERS Safety Report 6594411-6 (Version None)
Quarter: 2010Q1

REPORT INFORMATION
  Report Type: 
  Country: None (occurrence: None)
  Receive Date: 20100222
  Receipt Date: 20100212
  Transmission Date: 20100710
  Serious: Yes (Death)
  Sender: FDA-Public Use
  Company Number: B0633080A

PATIENT
  Age: 49 Year
  Sex: Male

DRUGS (4)
  1. PAROXETINE HYDROCHLORIDE [Suspect]
     Indication: DEPRESSION
     Dosage: 20MG PER DAY
     Dates: start: 20001101, end: 20011001
  2. PAROXETINE HYDROCHLORIDE [Suspect]
     Dosage: 10MG PER DAY
     Dates: start: 20011001
  3. PAROXETINE HYDROCHLORIDE [Suspect]
     Indication: ANXIETY
     Dosage: 20MG PER DAY
  4. HYPNOTICS [Concomitant]
     Indication: ANXIETY

REACTIONS (2)
  - ANXIETY [None]
  - COMPLETED SUICIDE [None]
